FAERS Safety Report 25831224 (Version 2)
Quarter: 2025Q4

REPORT INFORMATION
  Report Type: Spontaneous
  Country: IN (occurrence: IN)
  Receive Date: 20250922
  Receipt Date: 20251030
  Transmission Date: 20260117
  Serious: Yes (Other)
  Sender: PFIZER
  Company Number: IN-PFIZER INC-PV202500053756

PATIENT
  Age: 33 Year
  Sex: Female

DRUGS (9)
  1. LORLATINIB [Suspect]
     Active Substance: LORLATINIB
     Indication: Non-small cell lung cancer stage IV
     Dosage: 100 MG, 1X/DAY 2 MONTHS.
     Route: 048
  2. LORLATINIB [Suspect]
     Active Substance: LORLATINIB
     Dosage: 100 MG, 1X/DAY X 1 MONTH
     Route: 048
  3. APIXABAN [Concomitant]
     Active Substance: APIXABAN
     Dosage: UNK
  4. FENOFIBRATE/ROSUVASTATIN [Concomitant]
     Dosage: UNK, 1X/DAY
  5. FENOFIBRATE/ROSUVASTATIN [Concomitant]
     Dosage: UNK, 1X/DAY (X 1 MONTH)
  6. Revecium-CZ [Concomitant]
     Dosage: UNK, 1X/DAY
  7. CALCIUM\CHOLECALCIFEROL [Concomitant]
     Active Substance: CALCIUM\CHOLECALCIFEROL
     Dosage: 100 MG, 1X/DAY
     Route: 048
  8. CALCIUM\CHOLECALCIFEROL [Concomitant]
     Active Substance: CALCIUM\CHOLECALCIFEROL
     Dosage: 500 MG, 1X/DAY (X 1 MONTH)
  9. ZOLEDRONIC ACID [Concomitant]
     Active Substance: ZOLEDRONIC ACID
     Dosage: 4 MG IV IN 100 ML NS
     Route: 042

REACTIONS (6)
  - Optic neuritis [Unknown]
  - Anaemia [Recovering/Resolving]
  - Blood triglycerides increased [Unknown]
  - Blood cholesterol increased [Not Recovered/Not Resolved]
  - Swelling face [Unknown]
  - Eye disorder [Unknown]
